FAERS Safety Report 23851826 (Version 1)
Quarter: 2024Q2

REPORT INFORMATION
  Report Type: Spontaneous
  Country: US (occurrence: US)
  Receive Date: 20240514
  Receipt Date: 20240514
  Transmission Date: 20240715
  Serious: Yes (Other)
  Sender: FDA-Public Use
  Company Number: US-862174955-ML2024-02880

PATIENT
  Age: 24 Year
  Sex: Female

DRUGS (1)
  1. VERAPAMIL [Suspect]
     Active Substance: VERAPAMIL HYDROCHLORIDE
     Indication: Hypertrophic cardiomyopathy

REACTIONS (1)
  - Ventricular dyssynchrony [Recovered/Resolved]
